FAERS Safety Report 20883323 (Version 4)
Quarter: 2022Q3

REPORT INFORMATION
  Report Type: Spontaneous
  Country: US (occurrence: US)
  Receive Date: 20220527
  Receipt Date: 20220714
  Transmission Date: 20221027
  Serious: No
  Sender: FDA-Public Use
  Company Number: US-BRISTOL-MYERS SQUIBB COMPANY-2022-048454

PATIENT
  Age: 71 Year
  Sex: Male
  Weight: 110.22 kg

DRUGS (3)
  1. REVLIMID [Suspect]
     Active Substance: LENALIDOMIDE
     Indication: Plasma cell myeloma
     Dosage: 1 CAPSULE DAILY FOR 14 DAYS ON, THEN 7 DAYS OFF
     Route: 048
     Dates: start: 20220622, end: 20220713
  2. REVLIMID [Suspect]
     Active Substance: LENALIDOMIDE
     Route: 048
  3. REVLIMID [Suspect]
     Active Substance: LENALIDOMIDE
     Dosage: DAILY DAYS 1-14, EVERY 21 DAYS
     Route: 048
     Dates: start: 20220509

REACTIONS (7)
  - Gastrointestinal disorder [Unknown]
  - Dysgeusia [Recovering/Resolving]
  - Nausea [Unknown]
  - Blood potassium decreased [Not Recovered/Not Resolved]
  - Ageusia [Not Recovered/Not Resolved]
  - Joint swelling [Not Recovered/Not Resolved]
  - Peripheral swelling [Not Recovered/Not Resolved]

NARRATIVE: CASE EVENT DATE: 20220706
